FAERS Safety Report 20460731 (Version 1)
Quarter: 2022Q1

REPORT INFORMATION
  Report Type: Spontaneous
  Country: IT (occurrence: IT)
  Receive Date: 20220211
  Receipt Date: 20220211
  Transmission Date: 20220423
  Serious: Yes (Death, Hospitalization)
  Sender: FDA-Public Use
  Company Number: IT-GW PHARMA-202201ITGW00558

PATIENT

DRUGS (9)
  1. CANNABIDIOL [Suspect]
     Active Substance: CANNABIDIOL
     Indication: Seizure
     Dosage: 50 MILLIGRAM, BID
     Route: 048
  2. CANNABIDIOL [Suspect]
     Active Substance: CANNABIDIOL
     Dosage: TITRATED UPTO 200 MILLIGRAM, BID
     Route: 048
  3. DIAZEPAM [Concomitant]
     Active Substance: DIAZEPAM
     Indication: Seizure
     Dosage: PROGRESSIVELY REDUCED DOSE AND DISCONTINUED
     Route: 054
  4. HYDROCORTISONE [HYDROCORTISONE VALERATE] [Concomitant]
     Indication: Seizure
     Dosage: UNK
     Route: 065
  5. PRIMIDONE [Concomitant]
     Active Substance: PRIMIDONE
     Indication: Seizure
     Dosage: PROGRESSIVELY REDUCED DOSE AND DISCONTINUED
     Route: 065
  6. CARBAMAZEPINE [Concomitant]
     Active Substance: CARBAMAZEPINE
     Indication: Seizure
     Dosage: PROGRESSIVELY REDUCED DOSE AND DISCONTINUED
     Route: 065
  7. LEVETIRACETAM [Concomitant]
     Active Substance: LEVETIRACETAM
     Indication: Seizure
     Dosage: TITRATED UPTO 1200 MILLIGRAM, QD
     Route: 065
  8. PREGABALIN [Concomitant]
     Active Substance: PREGABALIN
     Indication: Seizure
     Dosage: UPTO 50 MILLIGRAM, BID
     Route: 065
  9. CLOBAZAM [Concomitant]
     Active Substance: CLOBAZAM
     Indication: Seizure
     Dosage: 20 MILLIGRAM, BID
     Route: 065

REACTIONS (2)
  - Pneumonia [Fatal]
  - Therapeutic response unexpected [Unknown]
